FAERS Safety Report 14368583 (Version 3)
Quarter: 2018Q1

REPORT INFORMATION
  Report Type: Spontaneous
  Country: US (occurrence: US)
  Receive Date: 20180109
  Receipt Date: 20180123
  Transmission Date: 20180509
  Serious: Yes (Other)
  Sender: FDA-Public Use
  Company Number: US-ACTELION-A-NJ2018-165240

PATIENT
  Age: 39 Year
  Sex: Female

DRUGS (10)
  1. L-THYROXINE [Concomitant]
     Active Substance: LEVOTHYROXINE
  2. SODIUM CHLORIDE. [Concomitant]
     Active Substance: SODIUM CHLORIDE
  3. BUMEX [Concomitant]
     Active Substance: BUMETANIDE
  4. ATIVAN [Concomitant]
     Active Substance: LORAZEPAM
  5. METOPROLOL TARTRATE. [Concomitant]
     Active Substance: METOPROLOL TARTRATE
  6. VELETRI [Suspect]
     Active Substance: EPOPROSTENOL
     Indication: PULMONARY HYPERTENSION
     Dosage: 1.5 MG, UNK
     Route: 042
  7. AMBRISENTAN [Suspect]
     Active Substance: AMBRISENTAN
     Indication: PULMONARY HYPERTENSION
     Dosage: 10 MG, QD
     Route: 065
     Dates: start: 20120823
  8. ALDACTONE [Concomitant]
     Active Substance: SPIRONOLACTONE
  9. SILDENAFIL. [Concomitant]
     Active Substance: SILDENAFIL
  10. POTASSIUM [Concomitant]
     Active Substance: POTASSIUM

REACTIONS (21)
  - Muscle spasms [Unknown]
  - Chronic right ventricular failure [Not Recovered/Not Resolved]
  - Drug dose omission [Unknown]
  - Vulval disorder [Unknown]
  - Hepatic congestion [Unknown]
  - Liver function test abnormal [Unknown]
  - Haemorrhage [Recovered/Resolved]
  - Transplant evaluation [Not Recovered/Not Resolved]
  - Catheter management [Unknown]
  - Herpes virus infection [Unknown]
  - Vulvovaginal mycotic infection [Unknown]
  - Device breakage [Recovered/Resolved]
  - Device connection issue [Recovered/Resolved]
  - Tricuspid valve disease [Not Recovered/Not Resolved]
  - Electrolyte imbalance [Unknown]
  - Drug administration error [Unknown]
  - Hypokalaemia [Not Recovered/Not Resolved]
  - Seizure [Unknown]
  - Hypotension [Unknown]
  - Tachyarrhythmia [Unknown]
  - Nervousness [Unknown]

NARRATIVE: CASE EVENT DATE: 20171212
